FAERS Safety Report 14181106 (Version 1)
Quarter: 2017Q4

REPORT INFORMATION
  Report Type: Spontaneous
  Country: US (occurrence: US)
  Receive Date: 20171112
  Receipt Date: 20171112
  Transmission Date: 20180321
  Serious: Yes (Disabling, Other)
  Sender: FDA-Public Use
  Company Number: US-TEVA-825252USA

PATIENT
  Sex: Male

DRUGS (1)
  1. AMIODARONE [Suspect]
     Active Substance: AMIODARONE
     Indication: ATRIAL FIBRILLATION
     Route: 065
     Dates: start: 201601

REACTIONS (13)
  - Blindness [Unknown]
  - Visual acuity reduced [Unknown]
  - Coordination abnormal [Unknown]
  - Visual impairment [Unknown]
  - Vision blurred [Unknown]
  - Asthenia [Unknown]
  - Off label use [Unknown]
  - Loss of personal independence in daily activities [Unknown]
  - Dizziness [Unknown]
  - Fatigue [Unknown]
  - Toxicity to various agents [Unknown]
  - Adverse event [Unknown]
  - Cerebrovascular accident [Unknown]

NARRATIVE: CASE EVENT DATE: 201609
